FAERS Safety Report 9324136 (Version 1)
Quarter: 2013Q2

REPORT INFORMATION
  Report Type: Spontaneous
  Country: GB (occurrence: GB)
  Receive Date: 20130603
  Receipt Date: 20130603
  Transmission Date: 20140414
  Serious: Yes (Disabling)
  Sender: FDA-Public Use
  Company Number: GB-TEVA-407994ISR

PATIENT
  Age: 79 Year
  Sex: 0

DRUGS (6)
  1. CITALOPRAM [Suspect]
     Indication: DEPRESSION
     Route: 048
     Dates: start: 201301, end: 20130227
  2. ZOPICLONE [Concomitant]
     Indication: INSOMNIA
     Dosage: NOT STOPPED.
     Route: 048
     Dates: start: 201301
  3. RAMIPRIL [Concomitant]
     Indication: HYPERTENSION
     Dosage: NOT STOPPED.
     Route: 048
     Dates: start: 201212
  4. OMEPRAZOLE [Concomitant]
     Dosage: NOT STOPPED.
     Route: 048
     Dates: start: 201301
  5. BISOPROLOL [Concomitant]
     Indication: HYPERTENSION
     Dosage: START DATE: UNKNOWN. NOT STOPPED.
     Route: 048
  6. SIMVASTATIN [Concomitant]
     Dosage: NOT STOPPED.
     Route: 048
     Dates: start: 201106

REACTIONS (3)
  - Ataxia [Recovered/Resolved]
  - Balance disorder [Recovered/Resolved]
  - Movement disorder [Recovered/Resolved]
